FAERS Safety Report 22392443 (Version 1)
Quarter: 2023Q2

REPORT INFORMATION
  Report Type: Spontaneous
  Country: US (occurrence: None)
  Receive Date: 20230531
  Receipt Date: 20230531
  Transmission Date: 20230722
  Serious: Yes (Hospitalization)
  Sender: FDA-Public Use
  Company Number: None

PATIENT
  Sex: Male

DRUGS (5)
  1. ACTEMRA [Suspect]
     Active Substance: TOCILIZUMAB
     Indication: Rheumatoid arthritis
     Dosage: 162 MG/0.9ML??INJECT 162 MG INTO THE SKIN EVERY FOURTEEN DAYS.
     Route: 058
     Dates: start: 20230414
  2. ACTEMRA [Suspect]
     Active Substance: TOCILIZUMAB
     Dosage: OTHER FREQUENCY : EVERY 14 DAYS;?
     Route: 058
  3. AMIODARONE [Concomitant]
  4. METOPROLOL TARTRATE [Concomitant]
     Active Substance: METOPROLOL TARTRATE
  5. ORENCIA [Concomitant]
     Active Substance: ABATACEPT

REACTIONS (2)
  - Skin infection [None]
  - Arrhythmia [None]
